FAERS Safety Report 25679776 (Version 1)
Quarter: 2025Q3

REPORT INFORMATION
  Report Type: Spontaneous
  Country: US (occurrence: US)
  Receive Date: 20250814
  Receipt Date: 20250814
  Transmission Date: 20251020
  Serious: No
  Sender: JOHNSON AND JOHNSON
  Company Number: US-JNJFOC-20250816424

PATIENT
  Sex: Male

DRUGS (2)
  1. ESKETAMINE [Suspect]
     Active Substance: ESKETAMINE
     Indication: Product used for unknown indication
  2. ESKETAMINE [Suspect]
     Active Substance: ESKETAMINE

REACTIONS (1)
  - Bone pain [Not Recovered/Not Resolved]
